FAERS Safety Report 6742797-1 (Version None)
Quarter: 2010Q2

REPORT INFORMATION
  Report Type: 
  Country: None (occurrence: None)
  Receive Date: 20100525
  Receipt Date: 20100510
  Transmission Date: 20101027
  Serious: Yes (Other)
  Sender: FDA-Public Use
  Company Number: AUR-APL-2010-01272

PATIENT
  Age: 11 Year
  Sex: Male

DRUGS (2)
  1. SERTRALINE HCL [Suspect]
     Indication: OBSESSIVE-COMPULSIVE DISORDER
     Dosage: 75 MG DAILY
  2. METHYLPHENIDATE HCL [Concomitant]

REACTIONS (4)
  - CONDITION AGGRAVATED [None]
  - ENURESIS [None]
  - OBSESSIVE-COMPULSIVE DISORDER [None]
  - SOCIAL PHOBIA [None]
